FAERS Safety Report 9457285 (Version 1)
Quarter: 2013Q3

REPORT INFORMATION
  Report Type: Report from Study
  Country: DE (occurrence: DE)
  Receive Date: 20130814
  Receipt Date: 20130814
  Transmission Date: 20140515
  Serious: Yes (Other)
  Sender: FDA-Public Use
  Company Number: PHHY2013DE045350

PATIENT
  Sex: Female

DRUGS (2)
  1. FTY 720 [Suspect]
     Indication: MULTIPLE SCLEROSIS
     Dosage: 0.5 MG, QD
     Route: 048
     Dates: start: 20121016
  2. PHYSIOTHERAPY [Concomitant]
     Indication: NERVOUS SYSTEM DISORDER
     Dosage: UNK UKN, UNK

REACTIONS (2)
  - Monocyte count increased [Recovered/Resolved]
  - Lymphocyte count decreased [Recovered/Resolved]
